FAERS Safety Report 24147328 (Version 3)
Quarter: 2024Q3

REPORT INFORMATION
  Report Type: Spontaneous
  Country: US (occurrence: US)
  Receive Date: 20240729
  Receipt Date: 20240805
  Transmission Date: 20241017
  Serious: Yes (Hospitalization, Other)
  Sender: SANOFI AVENTIS
  Company Number: None

PATIENT
  Age: 44 Year
  Sex: Male

DRUGS (5)
  1. PREDNISONE [Suspect]
     Active Substance: PREDNISONE
     Dosage: 5 MG, QD
     Dates: start: 202008
  2. PREDNISONE [Suspect]
     Active Substance: PREDNISONE
     Dosage: 10 MG, QD
     Dates: start: 202008
  3. ANTI-THYMOCYTE GLOBULIN (RABBIT) NOS [Suspect]
     Active Substance: LAPINE T-LYMPHOCYTE IMMUNE GLOBULIN
     Dosage: UNK
     Dates: start: 202008
  4. TACROLIMUS [Suspect]
     Active Substance: TACROLIMUS
     Dosage: 9 MG, BID (TARGET TROUGH LEVEL 6-8 NG/ML)
     Route: 048
     Dates: start: 202008
  5. MYCOPHENOLIC ACID [Suspect]
     Active Substance: MYCOPHENOLIC ACID
     Dosage: 1000 MG, BID
     Dates: start: 202008

REACTIONS (25)
  - Monkeypox [Recovering/Resolving]
  - Lip ulceration [Recovering/Resolving]
  - Mouth ulceration [Recovering/Resolving]
  - Pharyngeal ulceration [Recovering/Resolving]
  - Rash papular [Recovering/Resolving]
  - Chills [Recovering/Resolving]
  - Tension headache [Recovering/Resolving]
  - Pyrexia [Recovering/Resolving]
  - Nausea [Recovering/Resolving]
  - Lymphadenopathy [Recovering/Resolving]
  - Odynophagia [Recovering/Resolving]
  - Fatigue [Recovering/Resolving]
  - Drooling [Recovering/Resolving]
  - Decreased appetite [Recovering/Resolving]
  - Urinary retention [Recovered/Resolved]
  - Dysuria [Recovered/Resolved]
  - Chromaturia [Recovered/Resolved]
  - Ureteral wall thickening [Recovered/Resolved]
  - Proctitis [Recovering/Resolving]
  - Diarrhoea [Recovering/Resolving]
  - Abdominal pain [Recovering/Resolving]
  - Abdominal distension [Recovering/Resolving]
  - Gastrointestinal oedema [Recovering/Resolving]
  - Intestinal obstruction [Recovering/Resolving]
  - Superinfection bacterial [Recovering/Resolving]
